FAERS Safety Report 9759361 (Version 1)
Quarter: 2013Q4

REPORT INFORMATION
  Report Type: Spontaneous
  Country: US (occurrence: None)
  Receive Date: 20131216
  Receipt Date: 20131216
  Transmission Date: 20140711
  Serious: Yes (Hospitalization)
  Sender: FDA-Public Use
  Company Number: 163-21880-12041483(0)

PATIENT
  Age: 41 Year
  Sex: Female

DRUGS (1)
  1. REVLIMID (LENALIDOMIDE) [Suspect]
     Indication: PLASMA CELL MYELOMA
     Dosage: 10 MG, 3 X WEEKLY M-W-F, PO?UNKNOWN, PO? ?

REACTIONS (4)
  - Syncope [None]
  - Anaemia [None]
  - Rash [None]
  - Hypotension [None]
